FAERS Safety Report 4446420-0 (Version None)
Quarter: 2004Q3

REPORT INFORMATION
  Report Type: 
  Country: None (occurrence: None)
  Receive Date: 20040902
  Receipt Date: 20040820
  Transmission Date: 20050211
  Serious: Yes (Hospitalization)
  Sender: FDA-Public Use
  Company Number: 2004AP03854

PATIENT
  Age: 40 Year
  Sex: Female

DRUGS (2)
  1. TENORMIN [Suspect]
     Indication: HYPERTENSION
     Dosage: 37.5 MG DAILY PO
     Route: 048
     Dates: start: 20011002
  2. NORVASC [Concomitant]

REACTIONS (1)
  - BENIGN SOFT TISSUE NEOPLASM [None]
